FAERS Safety Report 7334050-2 (Version None)
Quarter: 2011Q1

REPORT INFORMATION
  Report Type: 
  Country: None (occurrence: None)
  Receive Date: 20110302
  Receipt Date: 20110302
  Transmission Date: 20110831
  Serious: No
  Sender: FDA-Public Use
  Company Number: None

PATIENT
  Age: 75 Year
  Sex: Female
  Weight: 108.8633 kg

DRUGS (2)
  1. CYMBALTA [Suspect]
  2. LITHIUM CARBONATE [Suspect]
     Dosage: DAILY 2 TWICE

REACTIONS (2)
  - FALL [None]
  - DECREASED ACTIVITY [None]
